FAERS Safety Report 22169416 (Version 1)
Quarter: 2023Q2

REPORT INFORMATION
  Report Type: Spontaneous
  Country: KR (occurrence: KR)
  Receive Date: 20230404
  Receipt Date: 20230404
  Transmission Date: 20230722
  Serious: No
  Sender: FDA-Public Use
  Company Number: KR-ALKEM LABORATORIES LIMITED-KR-ALKEM-2022-02381

PATIENT
  Age: 31 Year
  Sex: Male

DRUGS (1)
  1. COLCHICINE [Suspect]
     Active Substance: COLCHICINE
     Indication: Gout
     Dosage: 0.8 MILLIGRAM PER DAY
     Route: 065

REACTIONS (2)
  - Myopathy [Recovered/Resolved]
  - Blood creatine phosphokinase increased [Unknown]
